FAERS Safety Report 14152826 (Version 1)
Quarter: 2017Q4

REPORT INFORMATION
  Report Type: Report from Study
  Country: ES (occurrence: ES)
  Receive Date: 20171102
  Receipt Date: 20171102
  Transmission Date: 20180321
  Serious: Yes (Hospitalization)
  Sender: FDA-Public Use
  Company Number: ES-PFIZER INC-2017470198

PATIENT
  Age: 82 Year
  Sex: Male

DRUGS (3)
  1. EMCONCOR COR [Suspect]
     Active Substance: BISOPROLOL
     Indication: CARDIAC FAILURE
     Dosage: 5 MG, 2X/DAY (1-0-1)
     Route: 048
     Dates: start: 20091001, end: 20170505
  2. ALDACTONE [Suspect]
     Active Substance: SPIRONOLACTONE
     Indication: CARDIAC FAILURE
     Dosage: 25 MG, ALTERNATE DAY
     Route: 048
     Dates: start: 20170406, end: 20170505
  3. LOSARTAN. [Suspect]
     Active Substance: LOSARTAN
     Indication: CARDIAC FAILURE
     Dosage: 25 MG, 1X/DAY (1-0-0)
     Route: 048
     Dates: start: 20170424, end: 20170505

REACTIONS (2)
  - Hypotension [Recovering/Resolving]
  - Syncope [Recovering/Resolving]

NARRATIVE: CASE EVENT DATE: 20170504
